FAERS Safety Report 23060001 (Version 1)
Quarter: 2023Q4

REPORT INFORMATION
  Report Type: Spontaneous
  Country: US (occurrence: US)
  Receive Date: 20231012
  Receipt Date: 20231012
  Transmission Date: 20240110
  Serious: Yes (Other)
  Sender: FDA-Public Use
  Company Number: US-GILEAD-2023-0646831

PATIENT
  Age: 41 Year
  Sex: Male

DRUGS (1)
  1. BIKTARVY [Suspect]
     Active Substance: BICTEGRAVIR SODIUM\EMTRICITABINE\TENOFOVIR ALAFENAMIDE FUMARATE
     Indication: Product used for unknown indication
     Dosage: UNK (STARTED 4 YEARS AGO)
     Route: 065

REACTIONS (3)
  - Syncope [Not Recovered/Not Resolved]
  - Road traffic accident [Not Recovered/Not Resolved]
  - Concussion [Not Recovered/Not Resolved]
